FAERS Safety Report 14345426 (Version 1)
Quarter: 2018Q1

REPORT INFORMATION
  Report Type: Report from Study
  Country: FR (occurrence: FR)
  Receive Date: 20180103
  Receipt Date: 20180103
  Transmission Date: 20180509
  Serious: Yes (Other)
  Sender: FDA-Public Use
  Company Number: FR-BAUSCH-BL-2017-035866

PATIENT
  Age: 9 Year
  Sex: Male

DRUGS (7)
  1. DEXAMETHASONE. [Suspect]
     Active Substance: DEXAMETHASONE
     Indication: ACUTE LYMPHOCYTIC LEUKAEMIA
     Dosage: 10 MG, 1X/DAY
     Route: 048
     Dates: start: 20171106
  2. VINCRISTINE [Suspect]
     Active Substance: VINCRISTINE
     Indication: ACUTE LYMPHOCYTIC LEUKAEMIA
     Dosage: 1.4 MG, 1X/DAY
     Route: 042
     Dates: start: 20171106
  3. HYDROCORTISONE. [Suspect]
     Active Substance: HYDROCORTISONE
     Indication: ACUTE LYMPHOCYTIC LEUKAEMIA
     Dosage: 15 MG, 1X/DAY
     Route: 037
     Dates: start: 20171109, end: 20171109
  4. METHOTREXATE. [Suspect]
     Active Substance: METHOTREXATE
     Indication: ACUTE LYMPHOCYTIC LEUKAEMIA
     Dosage: 12 MG, 1X/DAY
     Route: 037
     Dates: start: 20171109, end: 20171109
  5. ADRIAMYCIN [Suspect]
     Active Substance: DOXORUBICIN HYDROCHLORIDE
     Indication: ACUTE LYMPHOCYTIC LEUKAEMIA
     Dosage: 24 MG, 1X/DAY
     Route: 042
     Dates: start: 20171106
  6. ONCASPAR [Suspect]
     Active Substance: PEGASPARGASE
     Indication: ACUTE LYMPHOCYTIC LEUKAEMIA
     Dosage: 2500 IU, 1X/DAY
     Route: 042
     Dates: start: 20171109, end: 20171109
  7. CYTARABINE. [Suspect]
     Active Substance: CYTARABINE
     Indication: ACUTE LYMPHOCYTIC LEUKAEMIA
     Dosage: 30 MG, 1X/DAY
     Route: 037
     Dates: start: 20171109, end: 20171109

REACTIONS (1)
  - Hypertriglyceridaemia [Unknown]

NARRATIVE: CASE EVENT DATE: 20171113
